FAERS Safety Report 14013664 (Version 1)
Quarter: 2017Q3

REPORT INFORMATION
  Report Type: Spontaneous
  Country: US (occurrence: US)
  Receive Date: 20170926
  Receipt Date: 20170926
  Transmission Date: 20171128
  Serious: Yes (Other)
  Sender: FDA-Public Use
  Company Number: US-BAUSCH-BL-2017-027690

PATIENT
  Sex: Female

DRUGS (6)
  1. APRISO [Suspect]
     Active Substance: MESALAMINE
     Dosage: ABOUT 1 YEAR AGO?2 CAPSULES AT NIGHT
     Route: 048
     Dates: start: 2016
  2. APRISO [Suspect]
     Active Substance: MESALAMINE
     Indication: CROHN^S DISEASE
     Dosage: ABOUT 1 AND 1/2 YEARS AGO?4 CAPSULES ORALLY AT NIGHT
     Route: 048
     Dates: start: 2016
  3. WELLBUTRIN [Concomitant]
     Active Substance: BUPROPION HYDROCHLORIDE
     Indication: PRODUCT USED FOR UNKNOWN INDICATION
     Dates: start: 2016
  4. VITAMIN B12 [Concomitant]
     Active Substance: CYANOCOBALAMIN
     Indication: PRODUCT USED FOR UNKNOWN INDICATION
     Dosage: EVERY WEEK
     Dates: start: 201707
  5. APRISO [Suspect]
     Active Substance: MESALAMINE
     Dosage: 4 CAPSULES AT NIGHT
     Route: 048
  6. PROZAC [Concomitant]
     Active Substance: FLUOXETINE HYDROCHLORIDE
     Indication: PRODUCT USED FOR UNKNOWN INDICATION
     Dosage: AT NIGHT
     Dates: start: 2014

REACTIONS (3)
  - Crohn^s disease [Recovering/Resolving]
  - Off label use [Not Recovered/Not Resolved]
  - Drug ineffective for unapproved indication [Unknown]

NARRATIVE: CASE EVENT DATE: 2016
